FAERS Safety Report 7332318-7 (Version None)
Quarter: 2011Q1

REPORT INFORMATION
  Report Type: 
  Country: None (occurrence: None)
  Receive Date: 20110304
  Receipt Date: 20110228
  Transmission Date: 20110831
  Serious: Yes (Hospitalization)
  Sender: FDA-Public Use
  Company Number: A0882804A

PATIENT
  Age: 52 Year
  Sex: Male
  Weight: 98.6 kg

DRUGS (9)
  1. AVANDIA [Suspect]
     Dosage: 4MG PER DAY
     Route: 048
     Dates: start: 20010601, end: 20091201
  2. IMDUR [Concomitant]
  3. WELCHOL [Concomitant]
  4. GLYBURIDE [Concomitant]
  5. LIPITOR [Concomitant]
  6. LOPRESSOR [Concomitant]
  7. ACCUPRIL [Concomitant]
  8. ASPIRIN [Concomitant]
  9. LIPITOR [Concomitant]

REACTIONS (2)
  - WALLENBERG SYNDROME [None]
  - CORONARY ARTERY DISEASE [None]
